FAERS Safety Report 5167665-0 (Version None)
Quarter: 2006Q4

REPORT INFORMATION
  Report Type: 
  Country: None (occurrence: None)
  Receive Date: 20061201
  Receipt Date: 20061201
  Transmission Date: 20070319
  Serious: Yes (Life-Threatening, Hospitalization, Disabling, Congenital Anomaly, Other)
  Sender: FDA-Public Use
  Company Number: None

PATIENT
  Sex: Female
  Weight: 2.7216 kg

DRUGS (1)
  1. PROAMATINE [Suspect]
     Indication: BLOOD PRESSURE
     Dosage: 5MG 4 TIMES A DAY OTIC
     Route: 050
     Dates: start: 20030902, end: 20041022

REACTIONS (8)
  - ANORECTAL DISORDER [None]
  - CONGENITAL ANOMALY [None]
  - DRUG EXPOSURE DURING PREGNANCY [None]
  - ILL-DEFINED DISORDER [None]
  - PREGNANCY [None]
  - RENAL DISORDER [None]
  - SPINAL DEFORMITY [None]
  - VAGINAL DISORDER [None]
